FAERS Safety Report 9660959 (Version 2)
Quarter: 2013Q4

REPORT INFORMATION
  Report Type: Spontaneous
  Country: US (occurrence: US)
  Receive Date: 20131031
  Receipt Date: 20131127
  Transmission Date: 20140711
  Serious: Yes (Other)
  Sender: FDA-Public Use
  Company Number: US-JHP PHARMACEUTICALS, LLC-JHP201300655

PATIENT
  Age: 53 Year
  Sex: Male
  Weight: 100 kg

DRUGS (3)
  1. KETALAR [Suspect]
     Dosage: 200-700 MG
     Route: 030
  2. BENZODIAZEPINE DERIVATIVES [Suspect]
     Indication: SEDATIVE THERAPY
  3. COCAINE [Suspect]

REACTIONS (2)
  - Salivary hypersecretion [Recovered/Resolved]
  - Respiratory depression [Recovered/Resolved]
